FAERS Safety Report 25796919 (Version 2)
Quarter: 2025Q3

REPORT INFORMATION
  Report Type: Spontaneous
  Country: US (occurrence: US)
  Receive Date: 20250912
  Receipt Date: 20250924
  Transmission Date: 20251020
  Serious: Yes (Death, Other)
  Sender: ARDELYX
  Company Number: US-ARDELYX-2025ARDX006824

PATIENT
  Age: 52 Year
  Sex: Male

DRUGS (1)
  1. XPHOZAH [Suspect]
     Active Substance: TENAPANOR HYDROCHLORIDE
     Indication: Chronic kidney disease
     Route: 048
     Dates: start: 2025

REACTIONS (4)
  - Cardiac arrest [Fatal]
  - Hypoxic-ischaemic encephalopathy [Fatal]
  - Brain injury [Fatal]
  - Treatment noncompliance [Unknown]

NARRATIVE: CASE EVENT DATE: 20250625
